FAERS Safety Report 9462679 (Version 3)
Quarter: 2016Q1

REPORT INFORMATION
  Report Type: Spontaneous
  Country: FR (occurrence: FR)
  Receive Date: 20130816
  Receipt Date: 20160316
  Transmission Date: 20160526
  Serious: Yes (Other)
  Sender: FDA-Public Use
  Company Number: FR-BRISTOL-MYERS SQUIBB COMPANY-19175140

PATIENT
  Age: 25 Year
  Sex: Male

DRUGS (2)
  1. CLOZAPINE. [Interacting]
     Active Substance: CLOZAPINE
     Indication: SCHIZOPHRENIA
     Dosage: STOPPED ON JUNE 2011, DOSE INCREASED TO 800MG/DAY AND DECREASED TO 500MG/DAY.
     Route: 065
     Dates: start: 201009
  2. ARIPIPRAZOLE. [Suspect]
     Active Substance: ARIPIPRAZOLE
     Indication: SCHIZOPHRENIA
     Dosage: 5 MG, QD
     Route: 065
     Dates: start: 201110, end: 201111

REACTIONS (3)
  - Off label use [Unknown]
  - Intestinal obstruction [Recovering/Resolving]
  - Constipation [Recovering/Resolving]
